FAERS Safety Report 9799218 (Version 3)
Quarter: 2014Q1

REPORT INFORMATION
  Report Type: Spontaneous
  Country: DE (occurrence: DE)
  Receive Date: 20140106
  Receipt Date: 20140130
  Transmission Date: 20141002
  Serious: Yes (Other)
  Sender: FDA-Public Use
  Company Number: DE-JNJFOC-20131217263

PATIENT
  Age: 67 Year
  Sex: Female

DRUGS (2)
  1. HALDOL DECANOATE [Suspect]
     Indication: SCHIZOPHRENIA, PARANOID TYPE
     Route: 030
     Dates: start: 200006
  2. ORFIRIL [Concomitant]
     Indication: SCHIZOPHRENIA, PARANOID TYPE
     Route: 048
     Dates: start: 201206, end: 201208

REACTIONS (1)
  - Asthma [Not Recovered/Not Resolved]
